FAERS Safety Report 9130112 (Version 2)
Quarter: 2013Q1

REPORT INFORMATION
  Report Type: Report from Study
  Country: DE (occurrence: DE)
  Receive Date: 20130228
  Receipt Date: 20130325
  Transmission Date: 20140127
  Serious: Yes (Death, Hospitalization)
  Sender: FDA-Public Use
  Company Number: DE-ACTELION-A-CH2013-79823

PATIENT
  Age: 50 Year
  Sex: Female
  Weight: 48 kg

DRUGS (10)
  1. TRACLEER [Suspect]
     Indication: SKIN ULCER
     Dosage: UNK
     Route: 048
     Dates: start: 20040301, end: 200407
  2. ILOMEDIN [Concomitant]
  3. THELIN [Concomitant]
     Dosage: 100 MG, UNK
  4. PREDNISOLONE [Concomitant]
     Dosage: 7.5 MG, UNK
  5. DOMPERIDONE [Concomitant]
     Dosage: 40 MG, TID
  6. KALINOR [Concomitant]
     Dosage: 1200 MG, UNK
  7. MINOCYCLIN [Concomitant]
  8. VIGANTOLETTEN [Concomitant]
     Dosage: 1000 IE/ML, UNK
  9. RAMIPRIL [Concomitant]
     Dosage: 2.5 MG, UNK
  10. PROCORALAN [Concomitant]
     Dosage: 7.5 MG, UNK

REACTIONS (6)
  - Cardiac arrest [Fatal]
  - Systemic sclerosis [Unknown]
  - Dyspnoea [Unknown]
  - Faeces pale [Unknown]
  - Disease progression [Unknown]
  - Palliative care [Unknown]
